FAERS Safety Report 8390429 (Version 4)
Quarter: 2012Q4

REPORT INFORMATION
  Report Type: 
  Country: US (occurrence: US)
  Receive Date: 20120203
  Receipt Date: 20121128
  Transmission Date: 20130627
  Serious: Yes (Other)
  Sender: FDA-Public Use
  Company Number: US-ASTRAZENECA-2012SE06858

PATIENT
  Age: 69 Year
  Sex: Female

DRUGS (1)
  1. CRESTOR [Suspect]
     Route: 048

REACTIONS (6)
  - Cerebrovascular accident [Unknown]
  - Confusional state [Unknown]
  - Vomiting [Unknown]
  - Memory impairment [Unknown]
  - Abdominal discomfort [Unknown]
  - Intentional drug misuse [Unknown]
